FAERS Safety Report 13447890 (Version 1)
Quarter: 2017Q2

REPORT INFORMATION
  Report Type: Spontaneous
  Country: US (occurrence: US)
  Receive Date: 20170417
  Receipt Date: 20170417
  Transmission Date: 20170830
  Serious: No
  Sender: FDA-Public Use
  Company Number: None

PATIENT
  Age: 78 Year
  Sex: Male
  Weight: 90.8 kg

DRUGS (1)
  1. DYMISTA [Suspect]
     Active Substance: AZELASTINE HYDROCHLORIDE\FLUTICASONE PROPIONATE
     Indication: RHINITIS ALLERGIC
     Dosage: 1 SPRAY EACH NOSTRIL BID INTRANASAL?UNKNOWN 10-15 DAYS
     Route: 045

REACTIONS (2)
  - Eye swelling [None]
  - Eyelid oedema [None]

NARRATIVE: CASE EVENT DATE: 20170314
